FAERS Safety Report 8060950-4 (Version None)
Quarter: 2012Q1

REPORT INFORMATION
  Report Type: 
  Country: None (occurrence: None)
  Receive Date: 20120120
  Receipt Date: 20120116
  Transmission Date: 20120608
  Serious: Yes (Other)
  Sender: FDA-Public Use
  Company Number: US-AMGEN-USASP2012002985

PATIENT
  Age: 62 Year
  Sex: Female

DRUGS (2)
  1. ENBREL [Suspect]
     Indication: ANKYLOSING SPONDYLITIS
     Dosage: 50 MG, QWK
     Dates: start: 20041118, end: 20120103
  2. PNEUMOCOCCAL VACCINE [Concomitant]
     Dosage: UNK
     Dates: start: 20120106, end: 20120106

REACTIONS (5)
  - LOCAL SWELLING [None]
  - PNEUMOCOCCAL IMMUNISATION [None]
  - PRURITUS [None]
  - SWELLING FACE [None]
  - OEDEMA PERIPHERAL [None]
